FAERS Safety Report 6717061-7 (Version None)
Quarter: 2010Q2

REPORT INFORMATION
  Report Type: 
  Country: None (occurrence: None)
  Receive Date: 20100510
  Receipt Date: 20100409
  Transmission Date: 20101027
  Serious: No
  Sender: FDA-Public Use
  Company Number: US-BAYER-201014214BCC

PATIENT

DRUGS (3)
  1. ALEVE (CAPLET) [Suspect]
     Indication: SKELETAL INJURY
     Route: 048
  2. TYLENOL-500 [Concomitant]
     Route: 065
  3. ASPIRIN [Concomitant]
     Route: 065

REACTIONS (1)
  - INITIAL INSOMNIA [None]
